FAERS Safety Report 5002357-X (Version None)
Quarter: 2006Q2

REPORT INFORMATION
  Report Type: 
  Country: None (occurrence: None)
  Receive Date: 20060512
  Receipt Date: 20060427
  Transmission Date: 20061013
  Serious: Yes (Hospitalization)
  Sender: FDA-Public Use
  Company Number: IN200605000091

PATIENT
  Age: 68 Year
  Sex: Female

DRUGS (6)
  1. GEMCITE (GEMCITABINE HYDROCHLORIDE UNKNOWN FORMULATION) [Suspect]
     Indication: PANCREATIC CARCINOMA
     Dates: start: 20060401, end: 20060401
  2. CISPLATIN [Concomitant]
  3. INSULIN GLARGINE [Concomitant]
  4. HUMALOG [Concomitant]
  5. ONDANSETRON HCL [Concomitant]
  6. DEXAMETHASONE TAB [Concomitant]

REACTIONS (1)
  - HYPOGLYCAEMIA [None]
